FAERS Safety Report 23553194 (Version 1)
Quarter: 2024Q1

REPORT INFORMATION
  Report Type: Spontaneous
  Country: US (occurrence: None)
  Receive Date: 20240221
  Receipt Date: 20240221
  Transmission Date: 20240410
  Serious: Yes (Hospitalization)
  Sender: FDA-Public Use
  Company Number: None

PATIENT
  Age: 66 Year
  Sex: Female
  Weight: 86.13 kg

DRUGS (2)
  1. ISONIAZID [Suspect]
     Active Substance: ISONIAZID
     Indication: Latent tuberculosis
     Dosage: OTHER FREQUENCY : ONCE PER WEEK;?
     Route: 048
     Dates: start: 20240201, end: 20240215
  2. PRIFTIN [Suspect]
     Active Substance: RIFAPENTINE
     Dosage: OTHER FREQUENCY : ONCE PER WEEK;?
     Route: 048
     Dates: start: 20240201, end: 20240215

REACTIONS (9)
  - Nausea [None]
  - Syncope [None]
  - Impaired driving ability [None]
  - Road traffic accident [None]
  - Amnesia [None]
  - Hypotension [None]
  - Blood pressure systolic decreased [None]
  - Brain natriuretic peptide increased [None]
  - Blood bilirubin increased [None]

NARRATIVE: CASE EVENT DATE: 20240215
